FAERS Safety Report 14227957 (Version 2)
Quarter: 2018Q1

REPORT INFORMATION
  Report Type: Spontaneous
  Country: FR (occurrence: FR)
  Receive Date: 20171127
  Receipt Date: 20180129
  Transmission Date: 20180508
  Serious: Yes (Hospitalization)
  Sender: FDA-Public Use
  Company Number: FR-PFIZER INC-2017502502

PATIENT
  Age: 83 Year
  Sex: Female
  Weight: 163 kg

DRUGS (18)
  1. PACLITAXEL HOSPIRA [Suspect]
     Active Substance: PACLITAXEL
     Dosage: 125 MG/M2, THRICE PER CYCLIC (3 WEEKS OUT OF 4); 153 MG (COURSE 2, DAY15)
     Route: 042
     Dates: start: 20171009
  2. EUROBIOL [Concomitant]
     Indication: DIARRHOEA
     Dosage: 25000 IU, 3X/DAY
     Route: 048
     Dates: start: 20170912
  3. GEMCITABINE [Suspect]
     Active Substance: GEMCITABINE\GEMCITABINE HYDROCHLORIDE
     Indication: PANCREATIC CARCINOMA
     Dosage: 3000 MG/M2, CYCLIC (3 WEEKS OUT OF 4); 1580 MG (1ST COURSE, DAY1)
     Route: 042
     Dates: start: 20170904
  4. GEMCITABINE [Suspect]
     Active Substance: GEMCITABINE\GEMCITABINE HYDROCHLORIDE
     Dosage: 1000 MG/M2, THRICE PER CYCLIC (3 WEEKS OUT OF 4); 1224 MG (2ND COURSE, DAY15)
     Route: 042
     Dates: start: 20171009
  5. PACLITAXEL HOSPIRA [Suspect]
     Active Substance: PACLITAXEL
     Dosage: 125 MG/M2, THRICE PER CYCLIC (3 WEEKS OUT OF 4); 194 MG (COURSE 2, DAY8)
     Route: 042
     Dates: start: 20171002
  6. GEMCITABINE [Suspect]
     Active Substance: GEMCITABINE\GEMCITABINE HYDROCHLORIDE
     Dosage: 1000 MG/M2, THRICE PER CYCLIC (3 WEEKS OUT OF 4); 1570 MG (1ST COURSE, DAY8)
     Route: 042
     Dates: start: 20170912
  7. GEMCITABINE [Suspect]
     Active Substance: GEMCITABINE\GEMCITABINE HYDROCHLORIDE
     Dosage: 1000 MG/M2, THRICE PER CYCLIC (3 WEEKS OUT OF 4); 1550 MG (2ND COURSE, DAY1)
     Route: 042
     Dates: start: 20170925
  8. GEMCITABINE [Suspect]
     Active Substance: GEMCITABINE\GEMCITABINE HYDROCHLORIDE
     Dosage: 1000 MG/M2, THRICE PER CYCLIC (3 WEEKS OUT OF 4); 1550 MG (2ND COURSE, DAY8)
     Route: 042
     Dates: start: 20171002
  9. CREON [Concomitant]
     Active Substance: PANCRELIPASE AMYLASE\PANCRELIPASE LIPASE\PANCRELIPASE PROTEASE
     Indication: DIARRHOEA
     Dosage: 50000 IU, 3X/DAY (ENTERIC-COATED GRANULES IN CAPSULE)
     Route: 048
  10. CREON [Concomitant]
     Active Substance: PANCRELIPASE AMYLASE\PANCRELIPASE LIPASE\PANCRELIPASE PROTEASE
     Dosage: 6 DF, UNK
     Route: 048
  11. CORDARONE [Concomitant]
     Active Substance: AMIODARONE HYDROCHLORIDE
     Dosage: 200 MG, 1X/DAY
     Route: 048
  12. DAFALGAN [Concomitant]
     Active Substance: ACETAMINOPHEN
     Dosage: 1 G, AS NEEDED
     Route: 048
  13. CREON [Concomitant]
     Active Substance: PANCRELIPASE AMYLASE\PANCRELIPASE LIPASE\PANCRELIPASE PROTEASE
     Dosage: 75000 IU, 3X/DAY
     Route: 048
     Dates: start: 201708
  14. EUROBIOL [Concomitant]
     Dosage: 75000 IU, UNK
     Route: 048
  15. PANTOPRAZOLE [Concomitant]
     Active Substance: PANTOPRAZOLE
     Dosage: 40 MG, 1X/DAY IN THE EVENING
     Route: 048
  16. LOPERAMIDE ARROW [Concomitant]
     Active Substance: LOPERAMIDE
     Indication: DIARRHOEA
     Dosage: 1 TO 9 DF IN THE MORNING, AT NOON AND IN THE EVENING, AS NEEDED
     Route: 048
  17. PACLITAXEL HOSPIRA [Suspect]
     Active Substance: PACLITAXEL
     Indication: PANCREATIC CARCINOMA
     Dosage: 375 MG/M2, CYCLIC (3 WEEKS OUT OF 4); 194 MG (COURSE 2, DAY1)
     Route: 042
     Dates: start: 20170925
  18. CLINUTREN HP [Concomitant]
     Dosage: UNK
     Route: 048
     Dates: start: 20170912

REACTIONS (8)
  - Nausea [Unknown]
  - Gastrointestinal disorder [Recovered/Resolved]
  - Hypokalaemia [Recovered/Resolved]
  - Weight decreased [Unknown]
  - Dehydration [Recovered/Resolved]
  - Vomiting [Recovered/Resolved]
  - Diarrhoea [Recovered/Resolved]
  - Condition aggravated [Recovered/Resolved]

NARRATIVE: CASE EVENT DATE: 20171010
